FAERS Safety Report 6720640-4 (Version None)
Quarter: 2010Q2

REPORT INFORMATION
  Report Type: 
  Country: None (occurrence: None)
  Receive Date: 20100510
  Receipt Date: 20100504
  Transmission Date: 20101027
  Serious: Yes (Other)
  Sender: FDA-Public Use
  Company Number: 20108657

PATIENT
  Age: 9 Year
  Sex: Male

DRUGS (1)
  1. LIORESAL [Suspect]
     Indication: MUSCLE SPASTICITY
     Dosage: 225 MCG, DAILY, INTRATHECAL
     Route: 037

REACTIONS (4)
  - HYPERHIDROSIS [None]
  - IRRITABILITY [None]
  - MUSCLE SPASTICITY [None]
  - THERAPY CESSATION [None]
